FAERS Safety Report 7790500-9 (Version None)
Quarter: 2011Q3

REPORT INFORMATION
  Report Type: 
  Country: None (occurrence: None)
  Receive Date: 20110930
  Receipt Date: 20110916
  Transmission Date: 20111222
  Serious: Yes (Other)
  Sender: FDA-Public Use
  Company Number: CA-ELI_LILLY_AND_COMPANY-CA201108004509

PATIENT
  Age: 66 Year
  Sex: Female

DRUGS (10)
  1. IRON [Concomitant]
     Indication: SUPPLEMENTATION THERAPY
     Dosage: UNK, QD
  2. ZINC [Concomitant]
     Indication: SUPPLEMENTATION THERAPY
     Dosage: 30 MG, QD
  3. FORTEO [Suspect]
     Indication: OSTEOPOROSIS
     Dosage: 20 UG, QD
     Route: 058
     Dates: start: 20100225
  4. TRAZODONE HYDROCHLORIDE [Concomitant]
     Indication: SLEEP DISORDER
     Dosage: 50 MG, QD
     Dates: start: 20100601
  5. VITAMIN D [Concomitant]
     Indication: SUPPLEMENTATION THERAPY
     Dosage: 2000 MG, QD
  6. COENZYME Q10 [Concomitant]
     Indication: SUPPLEMENTATION THERAPY
  7. DIAMOX SRC [Concomitant]
     Indication: MENIERE'S DISEASE
     Dosage: 125 MG, QD
     Dates: start: 20100113
  8. LEVOTHYROXINE SODIUM [Concomitant]
     Indication: HYPOTHYROIDISM
     Dosage: UNK, QD
     Dates: start: 19990101
  9. CALCIUM CARBONATE [Concomitant]
     Indication: SUPPLEMENTATION THERAPY
     Dosage: 930 MG, QD
  10. VAGIFEM [Concomitant]
     Dosage: 25 UG, 2/W
     Dates: start: 20091101

REACTIONS (4)
  - DYSPNOEA [None]
  - COUGH [None]
  - CHEST PAIN [None]
  - LUNG NEOPLASM [None]
